FAERS Safety Report 17571998 (Version 1)
Quarter: 2020Q1

REPORT INFORMATION
  Report Type: Spontaneous
  Country: CH (occurrence: CH)
  Receive Date: 20200323
  Receipt Date: 20200323
  Transmission Date: 20200409
  Serious: Yes (Hospitalization)
  Sender: FDA-Public Use
  Company Number: CH-UCBSA-2020010668

PATIENT
  Age: 68 Year
  Sex: Female
  Weight: 67 kg

DRUGS (16)
  1. APYDAN EXTENT [Suspect]
     Active Substance: OXCARBAZEPINE
     Indication: PRODUCT USED FOR UNKNOWN INDICATION
     Dosage: 300 MILLIGRAM, 2X/DAY (BID)
     Dates: start: 20191127, end: 20191205
  2. APYDAN EXTENT [Suspect]
     Active Substance: OXCARBAZEPINE
     Dosage: 75 MILLIGRAM, 2X/DAY (BID)
     Dates: start: 20191210, end: 20191213
  3. KEPPRA [Suspect]
     Active Substance: LEVETIRACETAM
     Indication: PRODUCT USED FOR UNKNOWN INDICATION
     Dosage: UNK
     Dates: start: 20191117, end: 20191125
  4. ORFIRIL [Suspect]
     Active Substance: VALPROATE SODIUM
     Dosage: 300 MILLIGRAM, 2X/DAY (BID)
     Dates: start: 20191126, end: 20191127
  5. VIMPAT [Suspect]
     Active Substance: LACOSAMIDE
     Dosage: 150 MILLIGRAM, 2X/DAY (BID)
     Dates: start: 20191130
  6. PANTOZOLE [Suspect]
     Active Substance: PANTOPRAZOLE SODIUM
     Indication: PRODUCT USED FOR UNKNOWN INDICATION
     Dosage: 40 MG DAILY
     Dates: start: 20191117
  7. ORFIRIL [Suspect]
     Active Substance: VALPROATE SODIUM
     Indication: PRODUCT USED FOR UNKNOWN INDICATION
     Dosage: 500 MILLIGRAM, 2X/DAY (BID)
     Dates: start: 20191119, end: 20191125
  8. ORFIRIL [Suspect]
     Active Substance: VALPROATE SODIUM
     Dosage: 500 MILLIGRAM, 2X/DAY (BID)
     Dates: start: 20191205, end: 20191209
  9. VIMPAT [Suspect]
     Active Substance: LACOSAMIDE
     Indication: PRODUCT USED FOR UNKNOWN INDICATION
     Dosage: 200 MILLIGRAM, 2X/DAY (BID)
     Dates: start: 20191118, end: 20191119
  10. VIMPAT [Suspect]
     Active Substance: LACOSAMIDE
     Dosage: 100 MILLIGRAM, 2X/DAY (BID)
     Dates: start: 20191120, end: 20191129
  11. ORFIRIL [Suspect]
     Active Substance: VALPROATE SODIUM
     Dosage: 500MG MORNING AND 1000MG EVENING
     Dates: start: 20191128, end: 20191205
  12. ORFIRIL [Suspect]
     Active Substance: VALPROATE SODIUM
     Dosage: 300 MILLIGRAM, 2X/DAY (BID)
     Dates: start: 20191209, end: 20191211
  13. ORFIRIL [Suspect]
     Active Substance: VALPROATE SODIUM
     Dosage: 500 MILLIGRAM, ONCE DAILY (QD)
     Dates: start: 20191212
  14. BRIVIACT [Suspect]
     Active Substance: BRIVARACETAM
     Indication: PRODUCT USED FOR UNKNOWN INDICATION
     Dosage: 200 MG DAILY
     Dates: start: 20191126
  15. APYDAN EXTENT [Suspect]
     Active Substance: OXCARBAZEPINE
     Dosage: 150 MILLIGRAM, 2X/DAY (BID)
     Dates: start: 20191205, end: 20191210
  16. URBANYL [Suspect]
     Active Substance: CLOBAZAM
     Indication: PRODUCT USED FOR UNKNOWN INDICATION
     Dosage: UNK
     Dates: start: 20191129, end: 20191223

REACTIONS (2)
  - Transaminases increased [Recovered/Resolved]
  - Ammonia increased [Recovered/Resolved]

NARRATIVE: CASE EVENT DATE: 20191202
